FAERS Safety Report 5245098-6 (Version None)
Quarter: 2007Q1

REPORT INFORMATION
  Report Type: 
  Country: None (occurrence: None)
  Receive Date: 20070223
  Receipt Date: 20070216
  Transmission Date: 20070707
  Serious: Yes (Other)
  Sender: FDA-Public Use
  Company Number: FR-AVENTIS-200614470FR

PATIENT
  Age: 56 Year
  Sex: Female

DRUGS (9)
  1. ARAVA [Suspect]
     Indication: RHEUMATOID ARTHRITIS
     Route: 048
  2. NEURONTIN [Concomitant]
     Route: 048
  3. BIPRETERAX [Concomitant]
     Route: 048
  4. COVERSYL                           /00790701/ [Concomitant]
     Route: 048
  5. ZOLOFT [Concomitant]
     Route: 048
  6. OMEPRAZOLE [Concomitant]
     Route: 048
  7. LEXOMIL [Concomitant]
     Route: 048
  8. DURAGESIC-100 [Concomitant]
     Route: 048
  9. ABUFENE [Concomitant]
     Route: 048

REACTIONS (5)
  - CUTANEOUS LUPUS ERYTHEMATOSUS [None]
  - ERYTHEMA ANNULARE [None]
  - RASH MACULAR [None]
  - RASH MACULO-PAPULAR [None]
  - RHEUMATOID ARTHRITIS [None]
